FAERS Safety Report 5233040-3 (Version None)
Quarter: 2007Q1

REPORT INFORMATION
  Report Type: 
  Country: None (occurrence: None)
  Receive Date: 20070207
  Receipt Date: 20070202
  Transmission Date: 20070707
  Serious: Yes (Hospitalization)
  Sender: FDA-Public Use
  Company Number: AU-ROXANE LABORATORIES, INC-2007-DE-00675GD

PATIENT
  Age: 45 Year
  Sex: Male

DRUGS (2)
  1. IBUPROFEN [Suspect]
     Indication: PAIN
     Dosage: 400 MG EVERY 3 TO 4 H
  2. PARACETAMOL/CODEINE [Suspect]
     Indication: PAIN
     Dosage: PARACETAMOL 500 MG/CODEINE 8 MG
     Route: 048

REACTIONS (13)
  - DECREASED APPETITE [None]
  - DRUG INEFFECTIVE [None]
  - LETHARGY [None]
  - NAUSEA [None]
  - NEPHRITIS INTERSTITIAL [None]
  - POLLAKIURIA [None]
  - PROTEINURIA [None]
  - PYREXIA [None]
  - PYURIA [None]
  - RENAL FAILURE ACUTE [None]
  - THIRST [None]
  - VOMITING [None]
  - WEIGHT DECREASED [None]
